FAERS Safety Report 7809303-1 (Version None)
Quarter: 2011Q4

REPORT INFORMATION
  Report Type: 
  Country: None (occurrence: None)
  Receive Date: 20111006
  Receipt Date: 20110930
  Transmission Date: 20120403
  Serious: Yes (Other)
  Sender: FDA-Public Use
  Company Number: DSA_47435_2011

PATIENT
  Sex: Male
  Weight: 63.9572 kg

DRUGS (3)
  1. XENAZINE [Suspect]
     Indication: DYSKINESIA
     Dosage: (50 MG TID ORAL), (200 MG, 75 MG BID (EACH MORNING AND AT MIDDAY) AND 50 MG EACH EVENING ORAL)
     Route: 048
     Dates: start: 20090115
  2. XENAZINE [Suspect]
     Indication: DYSKINESIA
     Dosage: (50 MG TID ORAL), (200 MG, 75 MG BID (EACH MORNING AND AT MIDDAY) AND 50 MG EACH EVENING ORAL)
     Route: 048
     Dates: start: 20110826
  3. QUETIAPINE [Suspect]
     Indication: PRODUCT USED FOR UNKNOWN INDICATION
     Dosage: DF, DF

REACTIONS (2)
  - HYPERSOMNIA [None]
  - MENTAL STATUS CHANGES [None]
